FAERS Safety Report 17340200 (Version 1)
Quarter: 2020Q1

REPORT INFORMATION
  Report Type: Spontaneous
  Country: US (occurrence: US)
  Receive Date: 20200114
  Receipt Date: 20200114
  Transmission Date: 20200409
  Serious: No
  Sender: FDA-Public Use
  Company Number: None

PATIENT
  Age: 71 Year
  Sex: Female

DRUGS (1)
  1. PROLIA [Suspect]
     Active Substance: DENOSUMAB
     Indication: OSTEOPOROSIS
     Route: 058
     Dates: start: 201908, end: 202001

REACTIONS (8)
  - Bedridden [None]
  - Fibromyalgia [None]
  - Drug intolerance [None]
  - Tooth disorder [None]
  - Headache [None]
  - Pain [None]
  - Injection site pain [None]
  - Polyneuropathy [None]

NARRATIVE: CASE EVENT DATE: 20190815
